FAERS Safety Report 6326334-1 (Version None)
Quarter: 2009Q3

REPORT INFORMATION
  Report Type: 
  Country: None (occurrence: None)
  Receive Date: 20090819
  Receipt Date: 20090813
  Transmission Date: 20100115
  Serious: Yes (Other)
  Sender: FDA-Public Use
  Company Number: A0791101A

PATIENT
  Age: 85 Year
  Sex: Female

DRUGS (1)
  1. UREA PEROXIDE [Suspect]
     Dosage: AURAL

REACTIONS (2)
  - DEAFNESS [None]
  - DRUG ADMINISTRATION ERROR [None]
